FAERS Safety Report 7064649-2 (Version None)
Quarter: 2010Q4

REPORT INFORMATION
  Report Type: 
  Country: None (occurrence: None)
  Receive Date: 20101019
  Receipt Date: 20101013
  Transmission Date: 20110411
  Serious: Yes (Death, Other)
  Sender: FDA-Public Use
  Company Number: 2010SP054767

PATIENT
  Age: 63 Year
  Sex: Male

DRUGS (2)
  1. PEG-INTRON [Suspect]
     Indication: HEPATIC CIRRHOSIS
     Dosage: 100 MCG; QW; SC
     Route: 058
  2. REBETOL [Suspect]
     Indication: HEPATIC CIRRHOSIS
     Dosage: 800 MG; QD; PO
     Route: 048

REACTIONS (6)
  - AUTOIMMUNE HEPATITIS [None]
  - CHOLECYSTITIS [None]
  - CONDITION AGGRAVATED [None]
  - HEPATIC FAILURE [None]
  - PERITONITIS BACTERIAL [None]
  - UPPER GASTROINTESTINAL HAEMORRHAGE [None]
